FAERS Safety Report 6768161-7 (Version None)
Quarter: 2010Q2

REPORT INFORMATION
  Report Type: 
  Country: None (occurrence: None)
  Receive Date: 20100614
  Receipt Date: 20100602
  Transmission Date: 20101027
  Serious: Yes (Hospitalization)
  Sender: FDA-Public Use
  Company Number: FR-SANOFI-AVENTIS-2010SA021695

PATIENT
  Age: 58 Year
  Sex: Female

DRUGS (9)
  1. LOVENOX [Suspect]
     Indication: THROMBOSIS PROPHYLAXIS
     Route: 058
     Dates: start: 20100301, end: 20100305
  2. AMOXICILLIN AND CLAVULANATE POTASSIUM [Suspect]
     Route: 042
     Dates: start: 20100302, end: 20100305
  3. LERCAN [Suspect]
     Route: 048
     Dates: start: 20100301, end: 20100307
  4. DIFFU K [Suspect]
     Route: 048
     Dates: start: 20100302, end: 20100306
  5. ALPRAZOLAM [Concomitant]
     Route: 065
  6. HYPERIUM [Concomitant]
     Route: 065
  7. SEROPLEX [Concomitant]
     Route: 065
  8. AMLODIPINE/VALSARTAN [Concomitant]
     Route: 065
  9. CALCIDIA [Concomitant]
     Route: 065

REACTIONS (1)
  - CHOLESTASIS [None]
